FAERS Safety Report 25049560 (Version 2)
Quarter: 2025Q1

REPORT INFORMATION
  Report Type: Report from Study
  Country: US (occurrence: US)
  Receive Date: 20250307
  Receipt Date: 20250311
  Transmission Date: 20250408
  Serious: Yes (Death)
  Sender: ROCHE
  Company Number: US-ROCHE-10000217876

PATIENT
  Age: 70 Year
  Sex: Male
  Weight: 99.79 kg

DRUGS (38)
  1. OCREVUS [Suspect]
     Active Substance: OCRELIZUMAB
     Indication: Multiple sclerosis
     Dosage: 300 MG AT DAY 1 AND DAY 15 ?13-SEP-2024 : MOST RECENT INFUSION DATE.?DATES OF TREATMENT: 06/MAR/2024
     Route: 042
     Dates: start: 20240306, end: 20240916
  2. OCREVUS [Suspect]
     Active Substance: OCRELIZUMAB
     Route: 042
  3. VALIUM [Concomitant]
     Active Substance: DIAZEPAM
     Route: 048
  4. VALIUM [Concomitant]
     Active Substance: DIAZEPAM
     Route: 048
  5. GABAPENTIN [Concomitant]
     Active Substance: GABAPENTIN
     Route: 048
  6. GABAPENTIN [Concomitant]
     Active Substance: GABAPENTIN
     Route: 048
  7. TIZANIDINE [Concomitant]
     Active Substance: TIZANIDINE
     Dosage: TAKE 2 TABLET BY MOUTH THREE TIMES A DAY AS NEEDED
     Route: 048
  8. TIZANIDINE [Concomitant]
     Active Substance: TIZANIDINE
     Dosage: TAKE 2 TABLET BY MOUTH THREE TIMES A DAY AS NEEDED
     Route: 048
  9. ASPIRIN [Concomitant]
     Active Substance: ASPIRIN
  10. ASPIRIN [Concomitant]
     Active Substance: ASPIRIN
  11. FOLIC ACID [Concomitant]
     Active Substance: FOLIC ACID
  12. ALBUTEROL SULFATE [Concomitant]
     Active Substance: ALBUTEROL SULFATE
     Dosage: 2.5 MG/3 ML (0.083%) SOLUTION FOR NEBULIZATION ?INHALE 1 ML IN EVERY 4 HR AS NEEDED
  13. ALBUTEROL SULFATE [Concomitant]
     Active Substance: ALBUTEROL SULFATE
     Dosage: 2.5 MG/3 ML (0.083%) SOLUTION FOR NEBULIZATION ?INHALE 1 ML IN EVERY 4 HR AS NEEDED
  14. BUPROPION HYDROCHLORIDE [Concomitant]
     Active Substance: BUPROPION HYDROCHLORIDE
  15. BUPROPION HYDROCHLORIDE [Concomitant]
     Active Substance: BUPROPION HYDROCHLORIDE
  16. MONTELUKAST [Concomitant]
     Active Substance: MONTELUKAST
  17. MONTELUKAST [Concomitant]
     Active Substance: MONTELUKAST
  18. METOPROLOL SUCCINATE [Concomitant]
     Active Substance: METOPROLOL SUCCINATE
  19. METOPROLOL SUCCINATE [Concomitant]
     Active Substance: METOPROLOL SUCCINATE
  20. NYSTATIN [Concomitant]
     Active Substance: NYSTATIN
  21. NYSTATIN [Concomitant]
     Active Substance: NYSTATIN
  22. CEPHALEXIN [Concomitant]
     Active Substance: CEPHALEXIN
  23. CEPHALEXIN [Concomitant]
     Active Substance: CEPHALEXIN
  24. TERCONAZOLE [Concomitant]
     Active Substance: TERCONAZOLE
  25. TERCONAZOLE [Concomitant]
     Active Substance: TERCONAZOLE
  26. VITAMIN D3 [Concomitant]
     Active Substance: CHOLECALCIFEROL
  27. TYLENOL [Concomitant]
     Active Substance: ACETAMINOPHEN
  28. EMPAGLIFLOZIN\LINAGLIPTIN [Concomitant]
     Active Substance: EMPAGLIFLOZIN\LINAGLIPTIN
  29. EMPAGLIFLOZIN\LINAGLIPTIN [Concomitant]
     Active Substance: EMPAGLIFLOZIN\LINAGLIPTIN
  30. BACLOFEN [Concomitant]
     Active Substance: BACLOFEN
     Indication: Muscle spasms
     Dosage: 1/2 TABLET BY MOUTH AS DIRECTED TAKE 1/2 TO 1 BY MOUTH EVERY 8 HOURSAS NEEDED
  31. BACLOFEN [Concomitant]
     Active Substance: BACLOFEN
     Indication: Muscle spasticity
     Dosage: 1/2 TABLET BY MOUTH AS DIRECTED TAKE 1/2 TO 1 BY MOUTH EVERY 8 HOURSAS NEEDED
  32. KETOTIFEN [Concomitant]
     Active Substance: KETOTIFEN
     Indication: Neuralgia
  33. KETAMINE [Concomitant]
     Active Substance: KETAMINE
     Indication: Neuralgia
     Dosage: APPLY ONE SMALL AMOUNT TO SKIN THREE TIMES A DAY. APPLY THREE TO FOUR TIMES DAILY TO AFFECTED AREA
  34. KETAMINE [Concomitant]
     Active Substance: KETAMINE
     Dosage: APPLY ONE SMALL AMOUNT TO SKIN THREE TIMES A DAY. APPLY THREE TO FOUR TIMES DAILY TO AFFECTED AREA
  35. KETOPROFEN [Concomitant]
     Active Substance: KETOPROFEN
  36. KETOPROFEN [Concomitant]
     Active Substance: KETOPROFEN
  37. LIDOCAINE [Concomitant]
     Active Substance: LIDOCAINE
  38. LIDOCAINE [Concomitant]
     Active Substance: LIDOCAINE

REACTIONS (1)
  - Death [Fatal]

NARRATIVE: CASE EVENT DATE: 20250101
